FAERS Safety Report 8822567 (Version 2)
Quarter: 2012Q4

REPORT INFORMATION
  Report Type: 
  Country: AU (occurrence: AU)
  Receive Date: 20121003
  Receipt Date: 20121005
  Transmission Date: 20130627
  Serious: Yes (Other)
  Sender: FDA-Public Use
  Company Number: AU-AMGEN-AUSSP2012061500

PATIENT
  Age: 74 Year
  Sex: Female

DRUGS (9)
  1. PROLIA [Suspect]
     Indication: OSTEOPOROSIS
     Dosage: UNK
     Dates: start: 201209
  2. SOMAC [Concomitant]
     Dosage: UNK
  3. MOVICOL                            /01625101/ [Concomitant]
     Dosage: UNK
  4. NITROLINGUAL [Concomitant]
     Dosage: UNK
  5. MOTILIUM                           /00498201/ [Concomitant]
     Dosage: UNK
  6. PANADOL                            /00020001/ [Concomitant]
  7. PROGOUT [Concomitant]
     Dosage: UNK
  8. UREMIDE [Concomitant]
     Dosage: UNK
  9. OXYCONTIN [Concomitant]
     Indication: OSTEOARTHRITIS
     Dosage: UNK

REACTIONS (17)
  - Angina pectoris [Recovering/Resolving]
  - Dyspnoea [Recovering/Resolving]
  - Vision blurred [Recovering/Resolving]
  - Diplopia [Recovering/Resolving]
  - Dysarthria [Recovering/Resolving]
  - Syncope [Recovering/Resolving]
  - Hypoaesthesia oral [Recovering/Resolving]
  - Disorientation [Recovering/Resolving]
  - Panic attack [Recovering/Resolving]
  - Joint swelling [Recovering/Resolving]
  - Muscle spasms [Recovering/Resolving]
  - Dry mouth [Recovering/Resolving]
  - Thirst [Recovering/Resolving]
  - Fatigue [Recovering/Resolving]
  - Pain [Recovering/Resolving]
  - Malaise [Recovering/Resolving]
  - Hypersensitivity [Unknown]
